FAERS Safety Report 5084080-9 (Version None)
Quarter: 2006Q3

REPORT INFORMATION
  Report Type: 
  Country: None (occurrence: None)
  Receive Date: 20060821
  Receipt Date: 20060810
  Transmission Date: 20061208
  Serious: Yes (Hospitalization)
  Sender: FDA-Public Use
  Company Number: US-JNJFOC-20060802703

PATIENT
  Sex: Female
  Weight: 77.11 kg

DRUGS (5)
  1. REMICADE [Suspect]
  2. REMICADE [Suspect]
  3. REMICADE [Suspect]
  4. REMICADE [Suspect]
     Indication: CROHN'S DISEASE
     Dosage: DOSE ^MAYBE 4-5 VIALS EVERY 7-8 WEEKS^
  5. PENTASA [Concomitant]

REACTIONS (8)
  - BURNING SENSATION [None]
  - CHEST PAIN [None]
  - DYSPHAGIA [None]
  - HEADACHE [None]
  - HYPOAESTHESIA [None]
  - INFUSION RELATED REACTION [None]
  - PARAESTHESIA [None]
  - SENSORY LOSS [None]
